FAERS Safety Report 5679461-6 (Version None)
Quarter: 2008Q1

REPORT INFORMATION
  Report Type: 
  Country: None (occurrence: None)
  Receive Date: 20080325
  Receipt Date: 20080213
  Transmission Date: 20080703
  Serious: Yes (Other)
  Sender: FDA-Public Use
  Company Number: US-PFIZER INC-2008013832

PATIENT
  Sex: Female

DRUGS (1)
  1. CELEBREX [Suspect]
     Indication: ANKYLOSING SPONDYLITIS

REACTIONS (14)
  - ABDOMINAL PAIN [None]
  - AMNESIA [None]
  - BRONCHITIS [None]
  - CHEST PAIN [None]
  - CONFUSIONAL STATE [None]
  - DIABETES MELLITUS [None]
  - DIZZINESS [None]
  - GASTRIC ULCER HAEMORRHAGE [None]
  - INSOMNIA [None]
  - LETHARGY [None]
  - MYOCARDIAL INFARCTION [None]
  - NEUROPATHY PERIPHERAL [None]
  - OEDEMA [None]
  - WEIGHT INCREASED [None]
